FAERS Safety Report 4298613-3 (Version None)
Quarter: 2004Q1

REPORT INFORMATION
  Report Type: 
  Country: None (occurrence: None)
  Receive Date: 20040126
  Receipt Date: 20031107
  Transmission Date: 20041129
  Serious: No
  Sender: FDA-Public Use
  Company Number: USA031050592

PATIENT
  Age: 43 Year
  Sex: Male

DRUGS (3)
  1. STRATTERA [Suspect]
     Indication: ANXIETY
     Dosage: 80 MG/DAY
  2. STRATTERA [Suspect]
     Indication: DEPRESSION
     Dosage: 80 MG/DAY
  3. KLONOPIN [Concomitant]

REACTIONS (3)
  - ARTHRALGIA [None]
  - MYALGIA [None]
  - OEDEMA PERIPHERAL [None]
